FAERS Safety Report 5139049-2 (Version None)
Quarter: 2006Q4

REPORT INFORMATION
  Report Type: 
  Country: None (occurrence: None)
  Receive Date: 20061030
  Receipt Date: 20060612
  Transmission Date: 20070319
  Serious: No
  Sender: FDA-Public Use
  Company Number: 2006PV014536

PATIENT
  Age: 49 Year
  Sex: Male

DRUGS (2)
  1. ADVAIR HFA [Suspect]
     Indication: ASTHMA
     Route: 055
  2. BYETTA [Suspect]
     Route: 058
     Dates: start: 20060208

REACTIONS (2)
  - FEELING JITTERY [None]
  - MUSCLE TIGHTNESS [None]
